FAERS Safety Report 10397072 (Version 1)
Quarter: 2014Q3

REPORT INFORMATION
  Report Type: Spontaneous
  Country: US (occurrence: None)
  Receive Date: 20140819
  Receipt Date: 20140819
  Transmission Date: 20150326
  Serious: Yes (Other)
  Sender: FDA-Public Use
  Company Number: None

PATIENT
  Age: 50 Year
  Sex: Male
  Weight: 74.84 kg

DRUGS (1)
  1. IMIQUIMOD. [Suspect]
     Active Substance: IMIQUIMOD
     Indication: SKIN DISORDER
     Dosage: CREAM- APPLIED ONCE DAY 2X WEK?1X DAY, 2X WEEK??APPLIED TO A SURFACE, USUALLY THE SKIN
     Dates: start: 20140522, end: 20140622

REACTIONS (2)
  - Migraine with aura [None]
  - Migraine [None]

NARRATIVE: CASE EVENT DATE: 20140623
